FAERS Safety Report 19201691 (Version 1)
Quarter: 2021Q2

REPORT INFORMATION
  Report Type: Other
  Country: GB (occurrence: GB)
  Receive Date: 20210430
  Receipt Date: 20210430
  Transmission Date: 20210717
  Serious: Yes (Other)
  Sender: FDA-Public Use
  Company Number: GB-APOTEX-2021AP010816

PATIENT
  Age: 53 Year
  Sex: Female

DRUGS (3)
  1. AMITRIPTYLIN [Concomitant]
     Active Substance: AMITRIPTYLINE
     Indication: PRODUCT USED FOR UNKNOWN INDICATION
     Dosage: 10 MG
     Route: 065
  2. PAROXETINE. [Suspect]
     Active Substance: PAROXETINE
     Dosage: 30 MG, (PAROXETINE 10MG FROM 30 MARCH2020 TO 26AUG.2020. PAROXETINE 30MG FROM 27AUG2020 TO 15APR2021
     Route: 048
     Dates: start: 20200827, end: 20210415
  3. PAROXETINE. [Suspect]
     Active Substance: PAROXETINE
     Indication: HOT FLUSH
     Dosage: 10 MG, (PAROXETINE 10MG FROM 30 MARCH2020 TO 26AUG.2020. PAROXETINE 30MG FROM 27AUG2020 TO 15APR2021
     Route: 048
     Dates: start: 20200330, end: 20200826

REACTIONS (3)
  - Bruxism [Not Recovered/Not Resolved]
  - Gingival pain [Unknown]
  - Oral pain [Unknown]

NARRATIVE: CASE EVENT DATE: 202008
